FAERS Safety Report 8832554 (Version 1)
Quarter: 2012Q4

REPORT INFORMATION
  Report Type: 
  Country: US (occurrence: US)
  Receive Date: 20121010
  Receipt Date: 20121010
  Transmission Date: 20130627
  Serious: Yes (Hospitalization)
  Sender: FDA-Public Use
  Company Number: US-MERCK-2010SP056871

PATIENT
  Age: 53 Year
  Sex: Female
  Weight: 75.5 kg

DRUGS (10)
  1. PEGINTERFERON ALFA-2B [Suspect]
     Indication: HEPATITIS C
     Dosage: 96 Microgram, Unknown
     Route: 058
     Dates: start: 20100307
  2. RIBAVIRIN [Suspect]
     Indication: HEPATITIS C
     Dosage: 1000 mg, Unknown
     Route: 048
     Dates: start: 20100307
  3. PEGINTERFERON ALFA-2B [Suspect]
     Indication: HEPATITIS C
     Dosage: 377.5 mg, Unknown
     Route: 042
     Dates: start: 20100303
  4. PROMETHAZINE [Concomitant]
     Indication: NAUSEA
     Dosage: 25 mg, q6h
     Route: 048
  5. DIPHENHYDRAMINE HYDROCHLORIDE [Concomitant]
     Indication: PRODUCT USED FOR UNKNOWN INDICATION
     Dosage: 50MG/ML; ONE INJECTABLE DOSE THROUGH IV FOR PREMEDICATION BEFORE STUDY INFUSION
     Route: 042
  6. ACETAMINOPHEN [Concomitant]
     Indication: PRODUCT USED FOR UNKNOWN INDICATION
     Dosage: 2 TABLETS
     Route: 065
  7. SYNTHROID [Concomitant]
     Indication: PRODUCT USED FOR UNKNOWN INDICATION
     Dosage: 50 Microgram, qam
     Route: 048
  8. PROZAC [Concomitant]
     Dosage: 10 mg, Unknown
     Route: 065
  9. SODIUM CHLORIDE [Concomitant]
     Dosage: UNK, q12h
     Route: 042
  10. INFLUENZA VIRUS VACCINE (UNSPECIFIED) [Concomitant]
     Dosage: UNK
     Dates: start: 20101018

REACTIONS (17)
  - Epstein-Barr virus infection [Recovered/Resolved]
  - Pain [Recovering/Resolving]
  - Pyrexia [Recovering/Resolving]
  - Influenza like illness [Recovering/Resolving]
  - Asthenia [Recovering/Resolving]
  - Pain [Recovering/Resolving]
  - Feeling hot [Recovering/Resolving]
  - Nausea [Recovering/Resolving]
  - Vomiting [Recovering/Resolving]
  - Cough [Recovering/Resolving]
  - Swelling [Recovering/Resolving]
  - Diarrhoea [Recovering/Resolving]
  - Abnormal faeces [Recovering/Resolving]
  - Urinary tract infection [Recovering/Resolving]
  - Abdominal distension [Recovering/Resolving]
  - Pancytopenia [Recovering/Resolving]
  - Splenomegaly [Recovering/Resolving]
